FAERS Safety Report 4495936-X (Version None)
Quarter: 2004Q4

REPORT INFORMATION
  Report Type: 
  Country: None (occurrence: None)
  Receive Date: 20041108
  Receipt Date: 20041029
  Transmission Date: 20050328
  Serious: Yes (Other)
  Sender: FDA-Public Use
  Company Number: JP-JNJFOC-20040604678

PATIENT
  Sex: Female

DRUGS (5)
  1. ITRIZOLE [Suspect]
     Indication: ONYCHOMYCOSIS
     Dosage: PULSE THERAPY 400MG/DAY
     Route: 049
     Dates: start: 20040526, end: 20040601
  2. KEISHI-BUKURYO-GAN [Concomitant]
     Route: 049
  3. TERBINAFINE HCL [Concomitant]
     Dates: start: 20040518, end: 20040615
  4. SALICYCLIC ACID [Concomitant]
     Dates: start: 20040518, end: 20040615
  5. AZULENE SULFONATE SODIUM-L-GLUTAMINE [Concomitant]
     Route: 049
     Dates: start: 20040526, end: 20040601

REACTIONS (4)
  - ERUCTATION [None]
  - GLOSSITIS [None]
  - HYPOAESTHESIA ORAL [None]
  - STOMACH DISCOMFORT [None]
